FAERS Safety Report 13168927 (Version 3)
Quarter: 2017Q1

REPORT INFORMATION
  Report Type: Spontaneous
  Country: IT (occurrence: IT)
  Receive Date: 20170201
  Receipt Date: 20170321
  Transmission Date: 20170428
  Serious: Yes (Other)
  Sender: FDA-Public Use
  Company Number: IT-ROCHE-1884876

PATIENT
  Age: 36 Year
  Sex: Female
  Weight: 68 kg

DRUGS (6)
  1. OMEPRAZOLE. [Concomitant]
     Active Substance: OMEPRAZOLE
     Route: 065
  2. ZOFRAN [Concomitant]
     Active Substance: ONDANSETRON HYDROCHLORIDE
     Route: 065
  3. DILATREND [Concomitant]
     Active Substance: CARVEDILOL
  4. XELODA [Suspect]
     Active Substance: CAPECITABINE
     Indication: BREAST CANCER METASTATIC
     Route: 048
     Dates: start: 20160927
  5. XELODA [Suspect]
     Active Substance: CAPECITABINE
     Dosage: 3RD CYCLE
     Route: 048
  6. VINORELBINE [Suspect]
     Active Substance: VINORELBINE\VINORELBINE TARTRATE
     Indication: BREAST CANCER METASTATIC
     Route: 042
     Dates: start: 20160927

REACTIONS (9)
  - Thrombocytopenia [Recovering/Resolving]
  - Hypertransaminasaemia [Recovering/Resolving]
  - Muscle spasms [Not Recovered/Not Resolved]
  - Oedema peripheral [Recovering/Resolving]
  - Diarrhoea [Recovering/Resolving]
  - Face oedema [Recovering/Resolving]
  - Pain in extremity [Not Recovered/Not Resolved]
  - Dysgeusia [Recovering/Resolving]
  - Vision blurred [Recovering/Resolving]

NARRATIVE: CASE EVENT DATE: 20160930
